FAERS Safety Report 18604092 (Version 1)
Quarter: 2020Q4

REPORT INFORMATION
  Report Type: Spontaneous
  Country: US (occurrence: US)
  Receive Date: 20201211
  Receipt Date: 20201211
  Transmission Date: 20210114
  Serious: No
  Sender: FDA-Public Use
  Company Number: US-009507513-2012USA002785

PATIENT
  Age: 19 Year
  Sex: Female

DRUGS (2)
  1. ETONOGESTREL (+) ETHINYL ESTRADIOL [Suspect]
     Active Substance: ETHINYL ESTRADIOL\ETONOGESTREL
     Dosage: 1 VAGINAL RING
     Route: 067
     Dates: start: 20201029
  2. ETONOGESTREL (+) ETHINYL ESTRADIOL [Suspect]
     Active Substance: ETHINYL ESTRADIOL\ETONOGESTREL
     Dosage: STRENGTH: 0.12MG/ 0.015MG, 1 (3 RINGS), FOR 4 WEEKS
     Route: 067
     Dates: end: 20201029

REACTIONS (5)
  - Metrorrhagia [Recovered/Resolved]
  - Inappropriate schedule of product administration [Unknown]
  - Migraine [Unknown]
  - Product prescribing error [Unknown]
  - Abdominal pain [Unknown]

NARRATIVE: CASE EVENT DATE: 20201029
